FAERS Safety Report 9414923 (Version 1)
Quarter: 2013Q3

REPORT INFORMATION
  Report Type: Spontaneous
  Country: US (occurrence: None)
  Receive Date: 20130718
  Receipt Date: 20130718
  Transmission Date: 20140515
  Serious: Yes (Congenital Anomaly, Other)
  Sender: FDA-Public Use
  Company Number: AUR-APL-2013-06026

PATIENT
  Age: 0 Day
  Sex: Male

DRUGS (3)
  1. VENLAFAXINE [Suspect]
     Indication: PRODUCT USED FOR UNKNOWN INDICATION
     Route: 064
  2. EFFEXOR [Suspect]
     Route: 064
  3. EFFEXOR XR [Suspect]
     Route: 064

REACTIONS (6)
  - Ventricular septal defect [None]
  - Diaphragmatic hernia [None]
  - Atrial septal defect [None]
  - Exomphalos [None]
  - Pulmonary hypoplasia [None]
  - Maternal drugs affecting foetus [None]
